FAERS Safety Report 5782596-0 (Version None)
Quarter: 2008Q2

REPORT INFORMATION
  Report Type: 
  Country: None (occurrence: None)
  Receive Date: 20080624
  Receipt Date: 20080602
  Transmission Date: 20081010
  Serious: Yes (Death)
  Sender: FDA-Public Use
  Company Number: CA-PFIZER INC-2008050975

PATIENT
  Age: 66 Year
  Sex: Female

DRUGS (5)
  1. ALPRAZOLAM [Suspect]
  2. MORPHINE SULFATE [Suspect]
     Route: 048
  3. CODEINE [Suspect]
     Route: 048
  4. ACETAMINOPHEN [Suspect]
     Route: 048
  5. DIAZEPAM [Suspect]

REACTIONS (1)
  - DRUG TOXICITY [None]
